FAERS Safety Report 15841460 (Version 3)
Quarter: 2019Q2

REPORT INFORMATION
  Report Type: Report from Study
  Country: US (occurrence: US)
  Receive Date: 20190118
  Receipt Date: 20190626
  Transmission Date: 20190711
  Serious: Yes (Hospitalization, Other)
  Sender: FDA-Public Use
  Company Number: US-SA-2016SA178988

PATIENT
  Age: 68 Year
  Sex: Male

DRUGS (6)
  1. INSULIN GLARGINE [Suspect]
     Active Substance: INSULIN GLARGINE
     Indication: TYPE 1 DIABETES MELLITUS
     Dosage: 22 U, QD
     Route: 058
  2. APIDRA [Concomitant]
     Active Substance: INSULIN GLULISINE
     Dosage: UNK UNK,TID
  3. HUMULIN NOS [Concomitant]
     Active Substance: INSULIN HUMAN
     Dosage: UNK UNK,UNK
     Route: 065
  4. APIDRA [Concomitant]
     Active Substance: INSULIN GLULISINE
     Dosage: UNK UNK,TID
  5. LEVEMIR [Concomitant]
     Active Substance: INSULIN DETEMIR
     Dosage: UNK
  6. INSULIN GLARGINE [Suspect]
     Active Substance: INSULIN GLARGINE
     Dosage: 24 IU, QD
     Route: 058

REACTIONS (29)
  - Cataract [Not Recovered/Not Resolved]
  - Diabetes mellitus inadequate control [Not Recovered/Not Resolved]
  - Vision blurred [Unknown]
  - Wound complication [Not Recovered/Not Resolved]
  - Visual impairment [Not Recovered/Not Resolved]
  - Weight increased [Recovered/Resolved]
  - Anaemia [Not Recovered/Not Resolved]
  - Drug resistance [Not Recovered/Not Resolved]
  - Respiratory disorder [Recovered/Resolved]
  - Peripheral swelling [Recovered/Resolved]
  - Pain in extremity [Recovered/Resolved]
  - Blood glucose decreased [Unknown]
  - Joint dislocation [Not Recovered/Not Resolved]
  - Retinal scar [Not Recovered/Not Resolved]
  - Prostatomegaly [Not Recovered/Not Resolved]
  - Renal failure [Not Recovered/Not Resolved]
  - Staphylococcal infection [Recovered/Resolved]
  - Eye haemorrhage [Recovered/Resolved]
  - Blood glucose increased [Recovered/Resolved]
  - Tremor [Not Recovered/Not Resolved]
  - Expired product administered [Unknown]
  - Pneumonia [Recovered/Resolved]
  - Bone disorder [Recovered/Resolved]
  - Neuropathy peripheral [Not Recovered/Not Resolved]
  - Fracture [Recovered/Resolved]
  - Glycosylated haemoglobin increased [Recovered/Resolved]
  - Product use issue [Unknown]
  - Swelling [Recovered/Resolved]
  - Road traffic accident [Unknown]
